FAERS Safety Report 5121745-4 (Version None)
Quarter: 2006Q4

REPORT INFORMATION
  Report Type: 
  Country: None (occurrence: None)
  Receive Date: 20061003
  Receipt Date: 20060915
  Transmission Date: 20070319
  Serious: Yes (Hospitalization)
  Sender: FDA-Public Use
  Company Number: DSA_28730_2006

PATIENT
  Age: 30 Year
  Sex: Female

DRUGS (2)
  1. ENALAPRIL MALEATE [Suspect]
     Indication: HYPERTENSION
     Dosage: 40 MG UNK; PO
     Route: 048
  2. NIFEDIPINE [Concomitant]

REACTIONS (4)
  - CHEST PAIN [None]
  - NAUSEA [None]
  - NECK PAIN [None]
  - PALPITATIONS [None]
